FAERS Safety Report 22005090 (Version 1)
Quarter: 2023Q1

REPORT INFORMATION
  Report Type: Spontaneous
  Country: US (occurrence: US)
  Receive Date: 20230217
  Receipt Date: 20230217
  Transmission Date: 20230417
  Serious: Yes (Death, Hospitalization, Other)
  Sender: FDA-Public Use
  Company Number: US-STERISCIENCE B.V.-2023-ST-000667

PATIENT
  Age: 66 Year
  Sex: Male

DRUGS (18)
  1. VANCOMYCIN [Suspect]
     Active Substance: VANCOMYCIN
     Indication: Infectious pleural effusion
     Dosage: UNKNOWN
     Route: 042
  2. VANCOMYCIN [Suspect]
     Active Substance: VANCOMYCIN
     Indication: Candida infection
  3. VANCOMYCIN [Suspect]
     Active Substance: VANCOMYCIN
     Indication: Klebsiella infection
  4. VANCOMYCIN [Suspect]
     Active Substance: VANCOMYCIN
     Indication: Enterococcal infection
  5. VANCOMYCIN [Suspect]
     Active Substance: VANCOMYCIN
     Indication: Pathogen resistance
  6. VANCOMYCIN [Suspect]
     Active Substance: VANCOMYCIN
     Indication: Septic shock
  7. MEROPENEM [Suspect]
     Active Substance: MEROPENEM
     Indication: Infectious pleural effusion
     Dosage: UNKNOWN
     Route: 065
  8. MEROPENEM [Suspect]
     Active Substance: MEROPENEM
     Indication: Candida infection
  9. MEROPENEM [Suspect]
     Active Substance: MEROPENEM
     Indication: Klebsiella infection
  10. MEROPENEM [Suspect]
     Active Substance: MEROPENEM
     Indication: Enterococcal infection
  11. MEROPENEM [Suspect]
     Active Substance: MEROPENEM
     Indication: Pathogen resistance
  12. MEROPENEM [Suspect]
     Active Substance: MEROPENEM
     Indication: Septic shock
  13. CASPOFUNGIN [Suspect]
     Active Substance: CASPOFUNGIN
     Indication: Infectious pleural effusion
     Dosage: UNKNOWN
     Route: 065
  14. CASPOFUNGIN [Suspect]
     Active Substance: CASPOFUNGIN
     Indication: Candida infection
  15. CASPOFUNGIN [Suspect]
     Active Substance: CASPOFUNGIN
     Indication: Septic shock
  16. CASPOFUNGIN [Suspect]
     Active Substance: CASPOFUNGIN
     Indication: Klebsiella infection
  17. CASPOFUNGIN [Suspect]
     Active Substance: CASPOFUNGIN
     Indication: Pathogen resistance
  18. NOREPINEPHRINE [Suspect]
     Active Substance: NOREPINEPHRINE
     Indication: Septic shock
     Dosage: UNKNOWN
     Route: 065

REACTIONS (1)
  - Drug ineffective [Fatal]
